FAERS Safety Report 4306950-9 (Version None)
Quarter: 2004Q1

REPORT INFORMATION
  Report Type: 
  Country: None (occurrence: None)
  Receive Date: 20040225
  Receipt Date: 20040210
  Transmission Date: 20041129
  Serious: Yes (Death)
  Sender: FDA-Public Use
  Company Number: GB94034156A

PATIENT
  Age: 65 Year
  Sex: Male
  Weight: 80 kg

DRUGS (2)
  1. PERMAX [Suspect]
     Indication: PARKINSON'S DISEASE
     Dosage: 1 DSG FORM/3 DAY
     Dates: start: 19930727, end: 19931019
  2. SINEMET [Suspect]

REACTIONS (2)
  - MYOCARDIAL INFARCTION [None]
  - PERICARDIAL HAEMORRHAGE [None]
